FAERS Safety Report 4609147-8 (Version None)
Quarter: 2005Q1

REPORT INFORMATION
  Report Type: 
  Country: None (occurrence: None)
  Receive Date: 20050315
  Receipt Date: 20050309
  Transmission Date: 20050727
  Serious: Yes (Hospitalization)
  Sender: FDA-Public Use
  Company Number: CA-MERCK-0503CAN00063

PATIENT
  Age: 35 Year
  Sex: Male

DRUGS (11)
  1. ZETIA [Suspect]
     Route: 048
     Dates: start: 20030101, end: 20050201
  2. ZETIA [Suspect]
     Route: 048
     Dates: start: 20050201, end: 20050201
  3. ROSUVASTATIN CALCIUM [Concomitant]
     Route: 065
     Dates: start: 20030101, end: 20050203
  4. DILTIAZEM HYDROCHLORIDE [Concomitant]
     Route: 065
  5. ASPIRIN [Concomitant]
     Route: 065
  6. RAMIPRIL [Concomitant]
     Route: 065
  7. ATENOLOL [Concomitant]
     Route: 065
  8. GLYBURIDE [Concomitant]
     Route: 065
  9. ROSIGLITAZONE MALEATE [Concomitant]
     Route: 065
  10. LORAZEPAM [Concomitant]
     Route: 065
  11. FUROSEMIDE [Concomitant]
     Indication: OEDEMA PERIPHERAL
     Route: 065

REACTIONS (3)
  - ANGINA PECTORIS [None]
  - DIZZINESS [None]
  - MYALGIA [None]
